FAERS Safety Report 14578954 (Version 1)
Quarter: 2018Q1

REPORT INFORMATION
  Report Type: Spontaneous
  Country: US (occurrence: US)
  Receive Date: 20180227
  Receipt Date: 20180227
  Transmission Date: 20180509
  Serious: Yes (Hospitalization, Disabling, Other)
  Sender: FDA-Public Use
  Company Number: US-OTSUKA-DJ20070680

PATIENT

DRUGS (1)
  1. ABILIFY [Suspect]
     Active Substance: ARIPIPRAZOLE
     Indication: SCHIZOPHRENIA
     Route: 065
     Dates: start: 20040419

REACTIONS (11)
  - Disturbance in attention [Unknown]
  - Temperature regulation disorder [Unknown]
  - Fatigue [Unknown]
  - Blood pressure increased [Unknown]
  - Incontinence [Unknown]
  - Toxic encephalopathy [Unknown]
  - Pneumonia aspiration [Unknown]
  - Balance disorder [Unknown]
  - Encephalopathy [Unknown]
  - Dysarthria [Unknown]
  - Dysphagia [Unknown]

NARRATIVE: CASE EVENT DATE: 200407
